FAERS Safety Report 5852028-2 (Version None)
Quarter: 2008Q3

REPORT INFORMATION
  Report Type: 
  Country: None (occurrence: None)
  Receive Date: 20080820
  Receipt Date: 20080812
  Transmission Date: 20090109
  Serious: Yes (Other)
  Sender: FDA-Public Use
  Company Number: US-PFIZER INC-2008067836

PATIENT
  Sex: Female
  Weight: 53.636 kg

DRUGS (1)
  1. LIPITOR [Suspect]
     Indication: BLOOD CHOLESTEROL
     Dates: start: 20080801, end: 20080801

REACTIONS (6)
  - BACK PAIN [None]
  - DYSPNOEA [None]
  - INSOMNIA [None]
  - PAIN [None]
  - PARALYSIS [None]
  - TREMOR [None]
